FAERS Safety Report 4578365-X (Version None)
Quarter: 2005Q1

REPORT INFORMATION
  Report Type: 
  Country: None (occurrence: None)
  Receive Date: 20050202
  Receipt Date: 20050202
  Transmission Date: 20050727
  Serious: Yes (Hospitalization)
  Sender: FDA-Public Use
  Company Number: None

PATIENT
  Age: 65 Year
  Sex: Male
  Weight: 149 kg

DRUGS (7)
  1. NESIRITIDE [Suspect]
     Dosage: 1.5MG
     Dates: start: 20040212
  2. ZESTRIL [Concomitant]
  3. LIPITOR [Concomitant]
  4. FLOMAX [Concomitant]
  5. LANTUS/HUMALOG [Concomitant]
  6. ZOLOFT [Concomitant]
  7. TOPROL-XL [Concomitant]

REACTIONS (4)
  - ADVERSE DRUG REACTION [None]
  - ANXIETY [None]
  - CARDIAC FAILURE CONGESTIVE [None]
  - TREMOR [None]
